FAERS Safety Report 7563280-X (Version None)
Quarter: 2011Q2

REPORT INFORMATION
  Report Type: 
  Country: None (occurrence: None)
  Receive Date: 20110622
  Receipt Date: 20110607
  Transmission Date: 20111010
  Serious: Yes (Other)
  Sender: FDA-Public Use
  Company Number: US-CELGENEUS-163-21660-11061698

PATIENT

DRUGS (3)
  1. ABRAXANE [Suspect]
     Indication: RETROPERITONEAL CANCER
  2. ABRAXANE [Suspect]
     Indication: OVARIAN CANCER
     Dosage: 100 MILLIGRAM/SQ. METER
     Route: 051
  3. ABRAXANE [Suspect]
     Indication: FALLOPIAN TUBE CANCER

REACTIONS (17)
  - CARDIAC DISORDER [None]
  - MUSCULOSKELETAL DISORDER [None]
  - HAEMORRHAGE [None]
  - LYMPHATIC DISORDER [None]
  - GASTROINTESTINAL DISORDER [None]
  - ANAEMIA [None]
  - NERVOUS SYSTEM DISORDER [None]
  - MALAISE [None]
  - THROMBOCYTOPENIA [None]
  - LEUKOPENIA [None]
  - METABOLIC DISORDER [None]
  - LUNG DISORDER [None]
  - SKIN DISORDER [None]
  - PERIPHERAL SENSORY NEUROPATHY [None]
  - PAIN [None]
  - NEUTROPENIA [None]
  - VISUAL IMPAIRMENT [None]
